FAERS Safety Report 4853002-5 (Version None)
Quarter: 2005Q4

REPORT INFORMATION
  Report Type: 
  Country: None (occurrence: None)
  Receive Date: 20051212
  Receipt Date: 20051130
  Transmission Date: 20060501
  Serious: Yes (Hospitalization)
  Sender: FDA-Public Use
  Company Number: HQWYE804401DEC05

PATIENT
  Age: 85 Year
  Sex: Male

DRUGS (7)
  1. PROTONIX [Suspect]
     Indication: ABDOMINAL PAIN
     Dosage: 40 MG 1X PER 1 DAY, ORAL
     Route: 048
     Dates: start: 20051006, end: 20051001
  2. PROTONIX [Suspect]
     Indication: GASTROOESOPHAGEAL REFLUX DISEASE
     Dosage: 40 MG 1X PER 1 DAY, ORAL
     Route: 048
     Dates: start: 20051006, end: 20051001
  3. PROTONIX [Suspect]
     Indication: ABDOMINAL PAIN
     Dosage: 40 MG 1X PER 1 DAY, ORAL
     Route: 048
     Dates: start: 20051001, end: 20051026
  4. PROTONIX [Suspect]
     Indication: GASTROOESOPHAGEAL REFLUX DISEASE
     Dosage: 40 MG 1X PER 1 DAY, ORAL
     Route: 048
     Dates: start: 20051001, end: 20051026
  5. DILANTIN [Concomitant]
  6. WARFARIN SODIUM [Concomitant]
  7. PROSCAR [Concomitant]

REACTIONS (9)
  - ANXIETY [None]
  - ASTHENIA [None]
  - DRUG INTOLERANCE [None]
  - FALL [None]
  - MALAISE [None]
  - ORAL DISCOMFORT [None]
  - RIB FRACTURE [None]
  - SKIN BURNING SENSATION [None]
  - THROAT IRRITATION [None]
